FAERS Safety Report 10178907 (Version 1)
Quarter: 2014Q2

REPORT INFORMATION
  Report Type: Spontaneous
  Country: US (occurrence: US)
  Receive Date: 20140519
  Receipt Date: 20140519
  Transmission Date: 20141212
  Serious: Yes (Death, Hospitalization)
  Sender: FDA-Public Use
  Company Number: US-ASTRAZENECA-2014SE34359

PATIENT
  Age: 41 Year
  Sex: Male

DRUGS (3)
  1. BRILINTA [Suspect]
     Indication: ACUTE MYOCARDIAL INFARCTION
     Dosage: 180MG
     Route: 048
     Dates: start: 20140513, end: 20140513
  2. BRILINTA [Suspect]
     Indication: ACUTE MYOCARDIAL INFARCTION
     Dosage: 180MG
     Route: 048
     Dates: start: 20140513, end: 20140513
  3. ASPIRIN [Concomitant]
     Dates: start: 20140513

REACTIONS (8)
  - Death [Fatal]
  - Restlessness [Unknown]
  - Agitation [Unknown]
  - Duodenal ulcer [Not Recovered/Not Resolved]
  - Electrocardiogram ST segment elevation [Unknown]
  - Hypotension [Unknown]
  - Haemorrhage [Not Recovered/Not Resolved]
  - Haematemesis [Unknown]
